FAERS Safety Report 15754694 (Version 1)
Quarter: 2018Q4

REPORT INFORMATION
  Report Type: Spontaneous
  Country: US (occurrence: US)
  Receive Date: 20181224
  Receipt Date: 20181224
  Transmission Date: 20190205
  Serious: Yes (Hospitalization)
  Sender: FDA-Public Use
  Company Number: US-HORIZON-PRO-0264-2018

PATIENT
  Age: 32 Year
  Sex: Female

DRUGS (1)
  1. PROCYSBI [Suspect]
     Active Substance: CYSTEAMINE BITARTRATE
     Indication: AMINO ACID METABOLISM DISORDER
     Dosage: 225 MG BID
     Route: 048

REACTIONS (1)
  - Thrombosis [Unknown]

NARRATIVE: CASE EVENT DATE: 20181208
